FAERS Safety Report 6319547-6 (Version None)
Quarter: 2009Q3

REPORT INFORMATION
  Report Type: 
  Country: None (occurrence: None)
  Receive Date: 20090822
  Receipt Date: 20080912
  Transmission Date: 20100115
  Serious: No
  Sender: FDA-Public Use
  Company Number: US-ABBOTT-08P-163-0475894-00

PATIENT
  Sex: Male
  Weight: 79.45 kg

DRUGS (9)
  1. NIASPAN [Suspect]
     Indication: LOW DENSITY LIPOPROTEIN INCREASED
     Dosage: 1000MG IN AM AND IN EVENING
     Route: 048
     Dates: start: 20000101, end: 20080912
  2. NIASPAN [Suspect]
     Indication: HIGH DENSITY LIPOPROTEIN DECREASED
  3. ESOMEPRAZOLE MAGNESIUM [Interacting]
     Indication: GASTROOESOPHAGEAL REFLUX DISEASE
     Route: 048
     Dates: start: 20000101
  4. GRECIAN HAIR FORMULA [Interacting]
     Indication: HAIR DISORDER
     Route: 061
     Dates: end: 20080912
  5. VIGRAN [Concomitant]
     Indication: ROUTINE HEALTH MAINTENANCE
     Route: 048
  6. HERBALS [Concomitant]
     Indication: ROUTINE HEALTH MAINTENANCE
     Route: 048
  7. CALCIUM-SANDOZ [Concomitant]
     Indication: ROUTINE HEALTH MAINTENANCE
     Route: 048
  8. ASPIRIN [Concomitant]
     Indication: DRUG USE FOR UNKNOWN INDICATION
     Route: 048
  9. FISH OIL [Concomitant]
     Indication: DRUG USE FOR UNKNOWN INDICATION
     Route: 048

REACTIONS (3)
  - BLOOD BILIRUBIN UNCONJUGATED INCREASED [None]
  - DRUG INTERACTION [None]
  - FLUSHING [None]
